FAERS Safety Report 14200499 (Version 1)
Quarter: 2017Q4

REPORT INFORMATION
  Report Type: Spontaneous
  Country: US (occurrence: US)
  Receive Date: 20171117
  Receipt Date: 20171117
  Transmission Date: 20180321
  Serious: Yes (Other)
  Sender: FDA-Public Use
  Company Number: US-ALLERGAN-1764690US

PATIENT
  Age: 74 Year
  Sex: Female

DRUGS (1)
  1. BOTOX [Suspect]
     Active Substance: ONABOTULINUMTOXINA
     Indication: PRODUCT USED FOR UNKNOWN INDICATION
     Dosage: UNK, SINGLE
     Route: 043
     Dates: start: 2015, end: 2015

REACTIONS (3)
  - Fall [Unknown]
  - Humerus fracture [Unknown]
  - Upper limb fracture [Unknown]

NARRATIVE: CASE EVENT DATE: 20160504
